FAERS Safety Report 25397202 (Version 1)
Quarter: 2025Q2

REPORT INFORMATION
  Report Type: Spontaneous
  Country: US (occurrence: US)
  Receive Date: 20250604
  Receipt Date: 20250604
  Transmission Date: 20250717
  Serious: No
  Sender: SPRINGWORKS THERAPEUTIC
  Company Number: US-SPRINGWORKS THERAPEUTICS-SW-002639

PATIENT

DRUGS (1)
  1. GOMEKLI [Suspect]
     Active Substance: MIRDAMETINIB
     Indication: Nervous system neoplasm
     Dates: start: 202503

REACTIONS (4)
  - Pain [Unknown]
  - Acne [Unknown]
  - Postural orthostatic tachycardia syndrome [Unknown]
  - Gastrointestinal disorder [Unknown]
